FAERS Safety Report 14758368 (Version 2)
Quarter: 2018Q2

REPORT INFORMATION
  Report Type: Spontaneous
  Country: US (occurrence: US)
  Receive Date: 20180413
  Receipt Date: 20180510
  Transmission Date: 20180711
  Serious: No
  Sender: FDA-Public Use
  Company Number: US-PFIZER INC-2018151021

PATIENT
  Age: 39 Year
  Sex: Male
  Weight: 136 kg

DRUGS (1)
  1. GABAPENTIN. [Suspect]
     Active Substance: GABAPENTIN
     Dosage: ONE 300MG CAPSULE, 3 TIMES DAILY
     Route: 048

REACTIONS (1)
  - Drug ineffective [Unknown]
